FAERS Safety Report 25352485 (Version 1)
Quarter: 2025Q2

REPORT INFORMATION
  Report Type: Spontaneous
  Country: US (occurrence: None)
  Receive Date: 20250522
  Receipt Date: 20250522
  Transmission Date: 20250717
  Serious: Yes (Other)
  Sender: FDA-CTU
  Company Number: None

PATIENT
  Age: 78 Year
  Sex: Male

DRUGS (4)
  1. XDEMVY [Suspect]
     Active Substance: LOTILANER
     Dosage: FREQUENCY : TWICE A DAY;?STRENGTH:  0.25%ML
     Route: 047
     Dates: start: 20250311, end: 20250314
  2. CLOPIDOGREL [Concomitant]
     Active Substance: CLOPIDOGREL BISULFATE
  3. FAMOTIDINE [Concomitant]
     Active Substance: FAMOTIDINE
  4. FENOFIBRATE [Concomitant]
     Active Substance: FENOFIBRATE

REACTIONS (1)
  - Drug hypersensitivity [None]

NARRATIVE: CASE EVENT DATE: 20250314
